FAERS Safety Report 25958247 (Version 2)
Quarter: 2025Q4

REPORT INFORMATION
  Report Type: Report from Study
  Country: JP (occurrence: JP)
  Receive Date: 20251024
  Receipt Date: 20251201
  Transmission Date: 20260118
  Serious: Yes (Death, Life-Threatening)
  Sender: SHIONOGI
  Company Number: JP-shionogi-202500011289

PATIENT
  Age: 71 Year
  Sex: Male
  Weight: 69.5 kg

DRUGS (37)
  1. CEFIDEROCOL [Suspect]
     Active Substance: CEFIDEROCOL
     Indication: Pneumonia
     Route: 041
     Dates: start: 20250515, end: 20250517
  2. CEFIDEROCOL [Suspect]
     Active Substance: CEFIDEROCOL
     Indication: Bacteraemia
     Route: 041
     Dates: start: 20250517, end: 20250517
  3. MICAFUNGIN SODIUM [Concomitant]
     Active Substance: MICAFUNGIN SODIUM
     Indication: Pneumonia
     Route: 065
     Dates: start: 20250505, end: 20250510
  4. MICAFUNGIN SODIUM [Concomitant]
     Active Substance: MICAFUNGIN SODIUM
     Indication: Bacteraemia
     Route: 065
     Dates: start: 20250515, end: 20250516
  5. MICAFUNGIN SODIUM [Concomitant]
     Active Substance: MICAFUNGIN SODIUM
     Indication: Product used for unknown indication
  6. VANCOMYCIN HYDROCHLORIDE [Concomitant]
     Active Substance: VANCOMYCIN HYDROCHLORIDE
     Indication: Pneumonia
     Route: 065
     Dates: start: 20250505, end: 20250505
  7. VANCOMYCIN HYDROCHLORIDE [Concomitant]
     Active Substance: VANCOMYCIN HYDROCHLORIDE
     Indication: Bacteraemia
     Route: 065
     Dates: start: 20250506, end: 20250506
  8. VANCOMYCIN HYDROCHLORIDE [Concomitant]
     Active Substance: VANCOMYCIN HYDROCHLORIDE
     Route: 065
     Dates: start: 20250507, end: 20250510
  9. VANCOMYCIN HYDROCHLORIDE [Concomitant]
     Active Substance: VANCOMYCIN HYDROCHLORIDE
     Route: 065
     Dates: start: 20250516, end: 20250517
  10. MEROPENEM [Concomitant]
     Active Substance: MEROPENEM
     Indication: Pneumonia
     Route: 065
     Dates: start: 20250505, end: 20250505
  11. MEROPENEM [Concomitant]
     Active Substance: MEROPENEM
     Indication: Bacteraemia
     Dosage: CONTINUOUS ADMINISTRATION OF 1 G + NS 100 ?L AT 8 ?L/DAY
     Route: 065
     Dates: start: 20250505, end: 20250515
  12. FOSFLUCONAZOLE [Concomitant]
     Active Substance: FOSFLUCONAZOLE
     Indication: Pneumonia
     Route: 065
     Dates: start: 20250510, end: 20250510
  13. FOSFLUCONAZOLE [Concomitant]
     Active Substance: FOSFLUCONAZOLE
     Indication: Bacteraemia
     Route: 065
     Dates: start: 20250511, end: 20250517
  14. FOSFLUCONAZOLE [Concomitant]
     Active Substance: FOSFLUCONAZOLE
     Route: 065
     Dates: start: 20250518, end: 20250910
  15. FOSFLUCONAZOLE [Concomitant]
     Active Substance: FOSFLUCONAZOLE
     Route: 065
     Dates: start: 20250509, end: 20250509
  16. AMIKACIN SULFATE [Concomitant]
     Active Substance: AMIKACIN SULFATE
     Indication: Pneumonia
     Route: 065
     Dates: start: 20250512, end: 20250514
  17. AMIKACIN SULFATE [Concomitant]
     Active Substance: AMIKACIN SULFATE
     Indication: Bacteraemia
  18. CIPROFLOXACIN [Concomitant]
     Active Substance: CIPROFLOXACIN
     Indication: Pneumonia
     Route: 065
     Dates: start: 20250512, end: 20250514
  19. CIPROFLOXACIN [Concomitant]
     Active Substance: CIPROFLOXACIN
     Indication: Bacteraemia
  20. AMINO ACIDS\DEXTROSE\ELECTROLYTES NOS\MINERALS\VITAMINS [Concomitant]
     Active Substance: AMINO ACIDS\DEXTROSE\ELECTROLYTES NOS\MINERALS\VITAMINS
     Indication: Prophylaxis
     Dosage: SINCE BEFORE THE START OF FETROJA
     Route: 065
     Dates: end: 20250517
  21. METOCLOPRAMIDE HYDROCHLORIDE [Concomitant]
     Active Substance: METOCLOPRAMIDE HYDROCHLORIDE
     Indication: Prophylaxis
     Dosage: SINCE BEFORE THE START OF FETROJA
     Route: 065
     Dates: end: 20250517
  22. DEXPANTHENOL [Concomitant]
     Active Substance: DEXPANTHENOL
     Indication: Prophylaxis
     Dosage: SINCE BEFORE THE START OF FETROJA
     Route: 065
     Dates: end: 20250517
  23. HUMULIN R [Concomitant]
     Active Substance: INSULIN HUMAN
     Indication: Product used for unknown indication
     Dosage: SINCE BEFORE THE START OF FETROJA
     Route: 065
     Dates: end: 20250517
  24. HEPARIN SODIUM [Concomitant]
     Active Substance: HEPARIN SODIUM
     Indication: Prophylaxis
     Dosage: SINCE BEFORE THE START OF FETROJA
     Route: 065
     Dates: end: 20250517
  25. MORPHINE HYDROCHLORIDE [Concomitant]
     Active Substance: MORPHINE HYDROCHLORIDE
     Indication: Prophylaxis
     Dosage: SINCE BEFORE THE START OF FETROJA
     Route: 065
     Dates: end: 20250517
  26. PROPOFOL [Concomitant]
     Active Substance: PROPOFOL
     Indication: Prophylaxis
     Dosage: SINCE BEFORE THE START OF FETROJA
     Route: 065
     Dates: end: 20250517
  27. NOREPINEPHRINE BITARTRATE [Concomitant]
     Active Substance: NOREPINEPHRINE BITARTRATE
     Indication: Product used for unknown indication
     Dosage: SINCE BEFORE THE START OF FETROJA
     Route: 065
     Dates: end: 20250517
  28. DEXTROSE [Concomitant]
     Active Substance: DEXTROSE MONOHYDRATE
     Indication: Product used for unknown indication
     Dosage: SINCE BEFORE THE START OF FETROJA
     Route: 065
     Dates: end: 20250517
  29. FUROSEMIDE [Concomitant]
     Active Substance: FUROSEMIDE
     Indication: Product used for unknown indication
     Dosage: SINCE BEFORE THE START OF FETROJA
     Route: 065
     Dates: end: 20250517
  30. NALOXONE HYDROCHLORIDE [Concomitant]
     Active Substance: NALOXONE HYDROCHLORIDE
     Indication: Product used for unknown indication
     Route: 065
     Dates: start: 20250515, end: 20250515
  31. FLUMAZENIL [Concomitant]
     Active Substance: FLUMAZENIL
     Indication: Product used for unknown indication
     Route: 065
     Dates: start: 20250515, end: 20250515
  32. PITRESSIN [Concomitant]
     Active Substance: VASOPRESSIN
     Indication: Product used for unknown indication
     Dosage: SINCE BEFORE THE START OF FETROJA
     Route: 065
     Dates: end: 20250517
  33. MEYLON [Concomitant]
     Active Substance: SODIUM BICARBONATE
     Indication: Acidosis
     Route: 065
     Dates: start: 20250516, end: 20250516
  34. CALCIUM GLUCONATE [Concomitant]
     Active Substance: CALCIUM GLUCONATE
     Indication: Hyperkalaemia
     Route: 065
     Dates: start: 20250516, end: 20250516
  35. VONOPRAZAN FUMARATE [Concomitant]
     Active Substance: VONOPRAZAN FUMARATE
     Indication: Prophylaxis
     Dosage: SINCE BEFORE THE START OF FETROJA, ADMINISTRATION VIA TUBE
     Route: 051
     Dates: end: 20250517
  36. OFLOXACIN [Concomitant]
     Active Substance: OFLOXACIN
     Indication: Product used for unknown indication
     Dosage: SINCE BEFORE THE START OF FETROJA
     Route: 061
     Dates: end: 20250517
  37. BREZTRI AEROSPHERE [BUDESONIDE;FORMOTEROL FUMARATE;GLYCOPYRRONIUM BROM [Concomitant]
     Indication: Product used for unknown indication
     Dosage: SINCE BEFORE THE START OF FETROJA
     Route: 061
     Dates: end: 20250517

REACTIONS (5)
  - Multiple organ dysfunction syndrome [Fatal]
  - COVID-19 [Fatal]
  - Hyperkalaemia [Not Recovered/Not Resolved]
  - Acidosis [Not Recovered/Not Resolved]
  - Blood creatinine increased [Not Recovered/Not Resolved]

NARRATIVE: CASE EVENT DATE: 20250515
